FAERS Safety Report 8835037 (Version 2)
Quarter: 2013Q1

REPORT INFORMATION
  Report Type: Report from Study
  Country: CA (occurrence: CA)
  Receive Date: 20121011
  Receipt Date: 20130201
  Transmission Date: 20140127
  Serious: Yes (Hospitalization)
  Sender: FDA-Public Use
  Company Number: CA-JNJFOC-20121001888

PATIENT
  Age: 55 Year
  Sex: Female
  Weight: 77.2 kg

DRUGS (6)
  1. REMICADE [Suspect]
     Indication: RHEUMATOID ARTHRITIS
     Dosage: INFUSION # 44
     Route: 042
     Dates: start: 20060320, end: 20120730
  2. SALBUTAMOL [Concomitant]
     Route: 065
  3. CELEBREX [Concomitant]
     Route: 065
  4. MTX [Concomitant]
     Indication: RHEUMATOID ARTHRITIS
     Route: 048
  5. NASONEX [Concomitant]
     Route: 065
  6. HYDROCHLOROTHIAZIDE [Concomitant]
     Route: 048

REACTIONS (2)
  - Ovarian cyst [Recovered/Resolved]
  - Tooth abscess [Unknown]
